FAERS Safety Report 8348225-7 (Version None)
Quarter: 2012Q2

REPORT INFORMATION
  Report Type: 
  Country: None (occurrence: None)
  Receive Date: 20120509
  Receipt Date: 20120503
  Transmission Date: 20120825
  Serious: Yes (Hospitalization)
  Sender: FDA-Public Use
  Company Number: PHHY2010BR44048

PATIENT
  Sex: Female
  Weight: 72 kg

DRUGS (4)
  1. ATENOLOL [Suspect]
     Dosage: 25 MG, UNK
  2. ATENOLOL [Concomitant]
     Dosage: 0.5 TABLET (25 MG) DAILY
     Dates: start: 19880101
  3. GALVUS MET [Suspect]
     Indication: DIABETES MELLITUS
     Dosage: 1 DF, BID (MORNING AND NIGHT)
     Route: 048
  4. DIAMICRON [Concomitant]
     Indication: DIABETES MELLITUS
     Dosage: 1 TABLET (30 MG) IN THE MORNING AND 1 TABLET AT NIGHT
     Route: 048

REACTIONS (6)
  - HYPERGLYCAEMIA [None]
  - VIITH NERVE PARALYSIS [None]
  - ASTHENIA [None]
  - HEADACHE [None]
  - DIZZINESS [None]
  - OSTEOPOROSIS [None]
